FAERS Safety Report 19604640 (Version 1)
Quarter: 2021Q3

REPORT INFORMATION
  Report Type: Spontaneous
  Country: US (occurrence: US)
  Receive Date: 20210723
  Receipt Date: 20210723
  Transmission Date: 20211014
  Serious: No
  Sender: FDA-Public Use
  Company Number: US-GLENMARK PHARMACEUTICALS-2021GMK054265

PATIENT

DRUGS (1)
  1. ONDANSETRON ORALLY DISINTEGRATING TABLETS [Suspect]
     Active Substance: ONDANSETRON
     Indication: PRODUCT USED FOR UNKNOWN INDICATION
     Dosage: 2 TABLETS ON THE TONGUE EVERY 8 HOURS AS NEEDED OR 1 TABLET ON THE TONGUE EVERY 4 HOURS
     Route: 063
     Dates: start: 2020

REACTIONS (1)
  - Exposure via breast milk [Unknown]
